FAERS Safety Report 10051877 (Version 1)
Quarter: 2014Q2

REPORT INFORMATION
  Report Type: Spontaneous
  Country: US (occurrence: US)
  Receive Date: 20140402
  Receipt Date: 20140402
  Transmission Date: 20141212
  Serious: No
  Sender: FDA-Public Use
  Company Number: US-009507513-1403USA010836

PATIENT
  Age: 16 Year
  Sex: Female

DRUGS (2)
  1. DULERA [Suspect]
     Indication: ASTHMA EXERCISE INDUCED
     Dosage: 1 INHALATION TWICE A DAY BUT WAS USING 2 INHALATIONS TWICE A DAY
     Route: 055
     Dates: start: 201312
  2. FLOVENT [Concomitant]
     Indication: ASTHMA
     Dosage: UNK
     Dates: end: 201312

REACTIONS (2)
  - Cushingoid [Recovered/Resolved]
  - Prescribed underdose [Unknown]
